FAERS Safety Report 5842820-2 (Version None)
Quarter: 2008Q3

REPORT INFORMATION
  Report Type: 
  Country: None (occurrence: None)
  Receive Date: 20080811
  Receipt Date: 20080804
  Transmission Date: 20090109
  Serious: Yes (Hospitalization, Disabling)
  Sender: FDA-Public Use
  Company Number: 2008SP012074

PATIENT
  Age: 52 Year
  Sex: Female

DRUGS (3)
  1. PEG-INTRON [Suspect]
     Indication: HEPATITIS C
     Dosage: SC
     Route: 058
     Dates: start: 20080523
  2. RIBAVIRIN [Suspect]
     Indication: HEPATITIS C
     Dosage: PO
     Route: 048
     Dates: start: 20080523
  3. CYMBALTA [Concomitant]

REACTIONS (12)
  - ASTHENIA [None]
  - CONDITION AGGRAVATED [None]
  - DEPRESSION [None]
  - DYSPNOEA [None]
  - FATIGUE [None]
  - HEPATIC PAIN [None]
  - INSOMNIA [None]
  - MENTAL DISORDER [None]
  - PAIN [None]
  - PLATELET COUNT DECREASED [None]
  - STRESS [None]
  - WHITE BLOOD CELL COUNT DECREASED [None]
